FAERS Safety Report 14240774 (Version 1)
Quarter: 2017Q4

REPORT INFORMATION
  Report Type: Spontaneous
  Country: GT (occurrence: GT)
  Receive Date: 20171130
  Receipt Date: 20171130
  Transmission Date: 20180321
  Serious: Yes (Other)
  Sender: FDA-Public Use
  Company Number: PHHY2017GT172071

PATIENT
  Age: 57 Year
  Sex: Female

DRUGS (1)
  1. ACLASTA [Suspect]
     Active Substance: ZOLEDRONIC ACID
     Indication: OSTEOPENIA
     Route: 065

REACTIONS (6)
  - Gingival disorder [Unknown]
  - Dental necrosis [Unknown]
  - Ocular hyperaemia [Unknown]
  - Vision blurred [Unknown]
  - Influenza [Recovering/Resolving]
  - Loose tooth [Unknown]
